FAERS Safety Report 8520417-3 (Version None)
Quarter: 2012Q3

REPORT INFORMATION
  Report Type: 
  Country: None (occurrence: None)
  Receive Date: 20120719
  Receipt Date: 20120712
  Transmission Date: 20120928
  Serious: Yes (Other)
  Sender: FDA-Public Use
  Company Number: US-ASTELLAS-2012US006174

PATIENT
  Sex: Male

DRUGS (2)
  1. PROGRAF [Suspect]
     Indication: HEART TRANSPLANT
     Dosage: 0.5 MG, BID
     Route: 048
     Dates: start: 19990220
  2. PROGRAF [Suspect]
     Indication: RENAL TRANSPLANT

REACTIONS (1)
  - RENAL TRANSPLANT [None]
